FAERS Safety Report 17669038 (Version 1)
Quarter: 2020Q2

REPORT INFORMATION
  Report Type: Spontaneous
  Country: US (occurrence: US)
  Receive Date: 20200415
  Receipt Date: 20200415
  Transmission Date: 20200713
  Serious: Yes (Life-Threatening, Hospitalization, Other)
  Sender: FDA-Public Use
  Company Number: US-MACLEODS PHARMACEUTICALS US LTD-MAC2020026128

PATIENT

DRUGS (5)
  1. BUPIVACAINE. [Suspect]
     Active Substance: BUPIVACAINE
     Indication: NERVE BLOCK
     Dosage: 22.5 MILLIGRAM, TOTAL
     Route: 065
  2. HYALURONIDASE [Concomitant]
     Active Substance: HYALURONIDASE
     Indication: PRODUCT USED FOR UNKNOWN INDICATION
     Dosage: 3 MILLILITER, TOTAL
     Route: 065
  3. BUPIVACAINE. [Suspect]
     Active Substance: BUPIVACAINE
     Dosage: 1.5 MILLILITER, TOTAL
     Route: 065
  4. LIDOCAINE. [Suspect]
     Active Substance: LIDOCAINE
     Dosage: 1.5 MILLILITER, TOTAL, 4%
     Route: 065
  5. LIDOCAINE. [Suspect]
     Active Substance: LIDOCAINE
     Indication: NERVE BLOCK
     Dosage: 120 MILLIGRAM, TOTAL, 4%
     Route: 065

REACTIONS (7)
  - Tachycardia [Recovered/Resolved]
  - Oxygen saturation decreased [Recovering/Resolving]
  - Electrocardiogram T wave amplitude increased [Recovered/Resolved]
  - Local anaesthetic systemic toxicity [Recovering/Resolving]
  - Agitation [Recovering/Resolving]
  - Electrocardiogram ST segment elevation [Recovered/Resolved]
  - Generalised tonic-clonic seizure [Recovered/Resolved]
